FAERS Safety Report 6680661-7 (Version None)
Quarter: 2010Q2

REPORT INFORMATION
  Report Type: 
  Country: None (occurrence: None)
  Receive Date: 20100414
  Receipt Date: 20100405
  Transmission Date: 20101027
  Serious: Yes (Other)
  Sender: FDA-Public Use
  Company Number: US-JNJFOC-20100401982

PATIENT
  Sex: Female
  Weight: 59.88 kg

DRUGS (6)
  1. FENTANYL CITRATE [Suspect]
     Indication: PAIN
     Route: 062
  2. FENTANYL CITRATE [Suspect]
     Indication: FIBROMYALGIA
     Route: 062
  3. DURAGESIC-100 [Suspect]
     Indication: PAIN
     Route: 062
  4. DURAGESIC-100 [Suspect]
     Indication: FIBROMYALGIA
     Route: 062
  5. HYDROCODONE BITARTRATE [Concomitant]
     Indication: PAIN
     Dosage: 7.5 MG/3.5 MG 3 TO 4 TIMES A DAY
     Route: 048
  6. CLONAZEPAM [Concomitant]
     Indication: SLEEP DISORDER
     Route: 048

REACTIONS (7)
  - ARTHRITIS [None]
  - BRONCHITIS [None]
  - DIZZINESS [None]
  - DRUG INEFFECTIVE [None]
  - OSTEOPOROSIS [None]
  - THROMBOSIS [None]
  - TRANSIENT ISCHAEMIC ATTACK [None]
